FAERS Safety Report 23788600 (Version 1)
Quarter: 2024Q2

REPORT INFORMATION
  Report Type: Spontaneous
  Country: GB (occurrence: GB)
  Receive Date: 20240426
  Receipt Date: 20240426
  Transmission Date: 20240716
  Serious: Yes (Hospitalization, Other)
  Sender: FDA-Public Use
  Company Number: None

PATIENT
  Age: 71 Year
  Sex: Male
  Weight: 105 kg

DRUGS (13)
  1. DICLOFENAC [Suspect]
     Active Substance: DICLOFENAC
     Indication: Sciatica
     Dosage: TIME INTERVAL: 0.33333333 DAYS: 50MG THREE TIMES A DAY; DURATION: 3 DAYS
     Route: 065
     Dates: start: 20240109, end: 20240112
  2. OMEPRAZOLE [Concomitant]
     Active Substance: OMEPRAZOLE
  3. IBUPROFEN [Concomitant]
     Active Substance: IBUPROFEN
  4. SERTRALINE [Concomitant]
     Active Substance: SERTRALINE HYDROCHLORIDE
  5. MESALAMINE [Concomitant]
     Active Substance: MESALAMINE
  6. TRAMADOL [Concomitant]
     Active Substance: TRAMADOL\TRAMADOL HYDROCHLORIDE
     Indication: Sciatica
  7. LOPERAMIDE [Concomitant]
     Active Substance: LOPERAMIDE
  8. SCOPOLAMINE [Concomitant]
     Active Substance: SCOPOLAMINE
  9. PERINDOPRIL [Concomitant]
     Active Substance: PERINDOPRIL
  10. ATORVASTATIN [Concomitant]
     Active Substance: ATORVASTATIN
  11. AMITRIPTYLINE [Concomitant]
     Active Substance: AMITRIPTYLINE
  12. ALLOPURINOL [Concomitant]
     Active Substance: ALLOPURINOL
  13. BUPRENORPHINE [Concomitant]
     Active Substance: BUPRENORPHINE

REACTIONS (1)
  - Myocardial infarction [Recovered/Resolved]

NARRATIVE: CASE EVENT DATE: 20240112
